FAERS Safety Report 15190994 (Version 1)
Quarter: 2018Q3

REPORT INFORMATION
  Report Type: Spontaneous
  Country: US (occurrence: US)
  Receive Date: 20180724
  Receipt Date: 20180724
  Transmission Date: 20181010
  Serious: Yes (Other)
  Sender: FDA-Public Use
  Company Number: US-009507513-1512USA007477

PATIENT
  Age: 22 Year
  Sex: Female

DRUGS (3)
  1. LAMIVUDINE. [Suspect]
     Active Substance: LAMIVUDINE
     Dosage: TOTAL DAILY DOSE: 1, COURSE NUMBER: 1
     Route: 048
     Dates: start: 2015, end: 2015
  2. ISENTRESS [Suspect]
     Active Substance: RALTEGRAVIR POTASSIUM
     Dosage: TOTAL DAILY DOSE: 1, COURSE NUMBER: 1
     Route: 048
     Dates: start: 2015, end: 2015
  3. ZIDOVUDINE. [Suspect]
     Active Substance: ZIDOVUDINE
     Dosage: TOTAL DAILY DOSE: 224, COURSE NUMBER: 1
     Route: 042
     Dates: start: 2015, end: 2015

REACTIONS (3)
  - Premature delivery [Unknown]
  - No adverse event [Unknown]
  - Maternal exposure during pregnancy [Recovered/Resolved]

NARRATIVE: CASE EVENT DATE: 20150208
